FAERS Safety Report 7683959-9 (Version None)
Quarter: 2011Q3

REPORT INFORMATION
  Report Type: 
  Country: None (occurrence: None)
  Receive Date: 20110815
  Receipt Date: 20110808
  Transmission Date: 20111222
  Serious: Yes (Other)
  Sender: FDA-Public Use
  Company Number: US-CEPHALON-2010005037

PATIENT
  Sex: Male
  Weight: 84 kg

DRUGS (5)
  1. CLONAZEPAM [Concomitant]
     Indication: RESTLESS LEGS SYNDROME
     Dates: start: 20000101
  2. PROVIGIL [Suspect]
     Route: 048
  3. PROVIGIL [Suspect]
     Indication: FIBROMYALGIA
     Route: 048
     Dates: start: 20050101, end: 20100801
  4. NORCO [Concomitant]
     Indication: PAIN
     Dates: start: 20000101
  5. LAMISIL [Concomitant]
     Indication: ONYCHOMYCOSIS
     Dates: start: 20100817

REACTIONS (7)
  - DRUG EFFECT DECREASED [None]
  - INSOMNIA [None]
  - FIBROMYALGIA [None]
  - THERAPEUTIC RESPONSE UNEXPECTED [None]
  - SPINAL DISORDER [None]
  - PALPITATIONS [None]
  - ROAD TRAFFIC ACCIDENT [None]
